FAERS Safety Report 11887059 (Version 1)
Quarter: 2016Q1

REPORT INFORMATION
  Report Type: Report from Study
  Country: DE (occurrence: DE)
  Receive Date: 20160104
  Receipt Date: 20160104
  Transmission Date: 20160526
  Serious: Yes (Hospitalization)
  Sender: FDA-Public Use
  Company Number: DE-ABBVIE-15P-062-1529913-00

PATIENT
  Sex: Male

DRUGS (1)
  1. DUODOPA [Suspect]
     Active Substance: CARBIDOPA\LEVODOPA
     Indication: PARKINSON^S DISEASE
     Dosage: MD: 10.6 ML, CRD: 6.9 ML/HM CRN: 5.5 ML/H, ED: 3.5 ML
     Route: 050
     Dates: start: 20140127

REACTIONS (2)
  - Device issue [Not Recovered/Not Resolved]
  - Device dislocation [Not Recovered/Not Resolved]
